FAERS Safety Report 7212491-1 (Version None)
Quarter: 2011Q1

REPORT INFORMATION
  Report Type: 
  Country: None (occurrence: None)
  Receive Date: 20110106
  Receipt Date: 20101227
  Transmission Date: 20110831
  Serious: Yes (Other)
  Sender: FDA-Public Use
  Company Number: JP-SANOFI-AVENTIS-2010SA078128

PATIENT
  Age: 65 Year
  Sex: Female

DRUGS (1)
  1. MYSLEE [Suspect]
     Route: 048
     Dates: start: 20100201, end: 20100201

REACTIONS (1)
  - ERYTHEMA MULTIFORME [None]
